FAERS Safety Report 9116589 (Version 2)
Quarter: 2013Q4

REPORT INFORMATION
  Report Type: Spontaneous
  Country: GB (occurrence: GB)
  Receive Date: 20130225
  Receipt Date: 20131105
  Transmission Date: 20140711
  Serious: Yes (Other)
  Sender: FDA-Public Use
  Company Number: PHHY2013GB015712

PATIENT
  Age: 18 Year
  Sex: Male

DRUGS (10)
  1. FLUOXETINE [Suspect]
     Indication: ANXIETY
     Dosage: 20 MG, UNK
     Route: 048
     Dates: start: 20130123, end: 20130201
  2. CLOBAZAM [Concomitant]
  3. CIRCADIN [Concomitant]
  4. VENTOLIN [Concomitant]
  5. PIZOTIFEN [Concomitant]
  6. LORATADINE [Concomitant]
  7. SODIUM VALPROATE [Concomitant]
  8. DESMOPRESSIN [Concomitant]
  9. MIDAZOLAM [Concomitant]
     Route: 002
  10. MIDAZOLAM [Concomitant]
     Route: 002

REACTIONS (5)
  - Epistaxis [Recovered/Resolved]
  - Condition aggravated [Unknown]
  - Priapism [Recovered/Resolved]
  - Agitation [Recovering/Resolving]
  - Aggression [Recovered/Resolved]
